FAERS Safety Report 9822345 (Version 1)
Quarter: 2014Q1

REPORT INFORMATION
  Report Type: Spontaneous
  Country: CO (occurrence: CO)
  Receive Date: 20140116
  Receipt Date: 20140116
  Transmission Date: 20141002
  Serious: Yes (Other)
  Sender: FDA-Public Use
  Company Number: CO-JNJFOC-20140106211

PATIENT
  Age: 28 Year
  Sex: Female
  Weight: 70 kg

DRUGS (3)
  1. TOPAMAC [Suspect]
     Indication: EPILEPSY
     Route: 048
     Dates: start: 201308
  2. LAMOTRIGINE [Concomitant]
     Indication: CONVULSION
     Dosage: SINCE ABOUT 8 YEARS AGO
     Route: 048
     Dates: start: 2006
  3. DEPAKENE [Concomitant]
     Indication: EPILEPSY
     Dosage: SINCE 15-20 YEARS
     Route: 048

REACTIONS (2)
  - Epilepsy [Unknown]
  - Therapy cessation [Unknown]
